FAERS Safety Report 4898683-5 (Version None)
Quarter: 2006Q1

REPORT INFORMATION
  Report Type: 
  Country: None (occurrence: None)
  Receive Date: 20060130
  Receipt Date: 20060113
  Transmission Date: 20060701
  Serious: Yes (Life-Threatening, Hospitalization)
  Sender: FDA-Public Use
  Company Number: 221077

PATIENT
  Age: 62 Year
  Sex: Male
  Weight: 71 kg

DRUGS (7)
  1. BEVACIZUMAB OR PLACEBO [Suspect]
     Indication: NON-SMALL CELL LUNG CANCER
     Dosage: 15 MG/KG, Q3W, INTRAVENOUS
     Route: 042
     Dates: start: 20050311, end: 20051215
  2. BEVACIZUMAB OR PLACEBO [Suspect]
  3. CISPLATIN [Suspect]
     Indication: NON-SMALL CELL LUNG CANCER
     Dosage: 80 MG/M2, Q3W, INTRAVENOUS
     Route: 042
     Dates: start: 20050311
  4. GEMCITABINE [Suspect]
     Indication: NON-SMALL CELL LUNG CANCER
     Dosage: 1250 MG/M2, Q3W,
     Dates: start: 20050311
  5. ADALAT [Concomitant]
  6. RAMIPRIL [Concomitant]
  7. NORVASC [Concomitant]

REACTIONS (4)
  - GASTROINTESTINAL PERFORATION [None]
  - ILEAL ULCER [None]
  - POSTOPERATIVE WOUND COMPLICATION [None]
  - WOUND DEHISCENCE [None]
